FAERS Safety Report 12530277 (Version 1)
Quarter: 2016Q3

REPORT INFORMATION
  Report Type: Spontaneous
  Country: US (occurrence: None)
  Receive Date: 20160705
  Receipt Date: 20160705
  Transmission Date: 20161109
  Serious: Yes (Other)
  Sender: FDA-Public Use
  Company Number: None

PATIENT
  Sex: Female
  Weight: 67.13 kg

DRUGS (11)
  1. ZYRTEX [Concomitant]
  2. XANAX [Concomitant]
     Active Substance: ALPRAZOLAM
  3. MENTELUKAST [Concomitant]
  4. ZOLOFT [Concomitant]
     Active Substance: SERTRALINE HYDROCHLORIDE
  5. TEMAZEPAN [Concomitant]
  6. VYVANSE [Concomitant]
     Active Substance: LISDEXAMFETAMINE DIMESYLATE
  7. ACIDOPHILUS [Concomitant]
     Active Substance: LACTOBACILLUS ACIDOPHILUS
  8. CALCIUM [Concomitant]
     Active Substance: CALCIUM
  9. MULTIVITAMIN [Concomitant]
     Active Substance: VITAMINS
  10. BEVACIZUMAB [Suspect]
     Active Substance: BEVACIZUMAB
     Indication: CHEMOTHERAPY
     Dosage: EVERY 21 DAYS
     Dates: start: 20160219, end: 20160312
  11. BEVACIZUMAB [Suspect]
     Active Substance: BEVACIZUMAB
     Indication: OVARIAN CANCER
     Dosage: EVERY 21 DAYS
     Dates: start: 20160219, end: 20160312

REACTIONS (9)
  - Nasal congestion [None]
  - Thrombosis [None]
  - Inflammation [None]
  - Epistaxis [None]
  - Pain in jaw [None]
  - Nasal septum perforation [None]
  - Facial pain [None]
  - Rhinalgia [None]
  - Eye pain [None]
